FAERS Safety Report 12227905 (Version 12)
Quarter: 2016Q4

REPORT INFORMATION
  Report Type: Report from Study
  Country: JP (occurrence: JP)
  Receive Date: 20160401
  Receipt Date: 20161031
  Transmission Date: 20170207
  Serious: Yes (Hospitalization, Other)
  Sender: FDA-Public Use
  Company Number: JP-TAKEDA-2016TJP006194

PATIENT
  Age: 62 Year
  Sex: Male
  Weight: 52.5 kg

DRUGS (5)
  1. BONALON [Concomitant]
     Active Substance: ALENDRONATE SODIUM
     Indication: OSTEOPOROSIS
     Dosage: 35 MG, 1/WEEK
     Route: 048
     Dates: start: 20160314
  2. HARNAL [Concomitant]
     Active Substance: TAMSULOSIN HYDROCHLORIDE
     Indication: BENIGN PROSTATIC HYPERPLASIA
     Dosage: 0.2 MG, QD
     Route: 048
     Dates: start: 20100216
  3. MLN0002 [Suspect]
     Active Substance: VEDOLIZUMAB
     Indication: COLITIS ULCERATIVE
     Dosage: 300 MG, Q8WEEKS
     Route: 041
     Dates: start: 20140422, end: 20151218
  4. CERNILTON                          /00521401/ [Concomitant]
     Indication: BENIGN PROSTATIC HYPERPLASIA
     Dosage: 2 DF, TID
     Route: 048
     Dates: start: 20151119
  5. PLACEBO [Suspect]
     Active Substance: UNSPECIFIED INGREDIENT
     Indication: COLITIS ULCERATIVE
     Dosage: MLN0002 300MG OR PLACEBO
     Route: 041
     Dates: start: 20140213, end: 20140327

REACTIONS (1)
  - Chest X-ray abnormal [Recovered/Resolved]

NARRATIVE: CASE EVENT DATE: 20160324
